FAERS Safety Report 25269859 (Version 8)
Quarter: 2025Q4

REPORT INFORMATION
  Report Type: Spontaneous
  Country: US (occurrence: US)
  Receive Date: 20250505
  Receipt Date: 20251004
  Transmission Date: 20260117
  Serious: Yes (Hospitalization, Other)
  Sender: SANOFI AVENTIS
  Company Number: US-SA-2025SA075694

PATIENT
  Age: 81 Year
  Sex: Female

DRUGS (4)
  1. DUPIXENT [Suspect]
     Active Substance: DUPILUMAB
     Indication: Chronic obstructive pulmonary disease
     Dosage: 600 MG, 1X
     Route: 058
     Dates: start: 20250214, end: 20250214
  2. DUPIXENT [Suspect]
     Active Substance: DUPILUMAB
     Indication: Asthma
     Dosage: 300 MG, QOW
     Route: 058
     Dates: start: 2025, end: 2025
  3. NUCALA [Concomitant]
     Active Substance: MEPOLIZUMAB
     Dosage: UNK
  4. IRON [Concomitant]
     Active Substance: IRON
     Dosage: UNK

REACTIONS (9)
  - Pneumonia [Not Recovered/Not Resolved]
  - Pulmonary oedema [Not Recovered/Not Resolved]
  - Dyspnoea [Unknown]
  - Panic attack [Unknown]
  - Illness [Unknown]
  - Viral infection [Unknown]
  - Back pain [Unknown]
  - Asthma [Not Recovered/Not Resolved]
  - Drug ineffective [Unknown]

NARRATIVE: CASE EVENT DATE: 20250101
